FAERS Safety Report 15645927 (Version 1)
Quarter: 2018Q4

REPORT INFORMATION
  Report Type: Spontaneous
  Country: US (occurrence: US)
  Receive Date: 20181121
  Receipt Date: 20181121
  Transmission Date: 20190205
  Serious: No
  Sender: FDA-Public Use
  Company Number: US-ASTRAZENECA-2018SF41126

PATIENT
  Sex: Female

DRUGS (2)
  1. ALBUTEROL. [Concomitant]
     Active Substance: ALBUTEROL
     Dosage: UNKNOWN
     Route: 065
  2. SYMBICORT [Suspect]
     Active Substance: BUDESONIDE\FORMOTEROL FUMARATE DIHYDRATE
     Dosage: 80/4.5 UG UNKNOWN UNKNOWN
     Route: 055

REACTIONS (5)
  - Dysphonia [Unknown]
  - Aphonia [Unknown]
  - Accidental exposure to product [Unknown]
  - Oropharyngeal pain [Unknown]
  - Speech disorder [Unknown]

NARRATIVE: CASE EVENT DATE: 20181021
